FAERS Safety Report 7751396-4 (Version None)
Quarter: 2011Q3

REPORT INFORMATION
  Report Type: 
  Country: None (occurrence: None)
  Receive Date: 20110914
  Receipt Date: 20110908
  Transmission Date: 20111222
  Serious: Yes (Other)
  Sender: FDA-Public Use
  Company Number: JP-PFIZER INC-2011211549

PATIENT
  Sex: Male

DRUGS (2)
  1. LYRICA [Suspect]
     Dosage: 150 MG (2 CAPSULES)
     Route: 048
  2. LYRICA [Suspect]
     Dosage: 25 MG, 2X/DAY
     Route: 048
     Dates: start: 20110908

REACTIONS (5)
  - TREMOR [None]
  - LOSS OF CONTROL OF LEGS [None]
  - DYSARTHRIA [None]
  - PAIN [None]
  - INSOMNIA [None]
